FAERS Safety Report 20628171 (Version 1)
Quarter: 2022Q1

REPORT INFORMATION
  Report Type: Report from Study
  Country: US (occurrence: US)
  Receive Date: 20220323
  Receipt Date: 20220323
  Transmission Date: 20220423
  Serious: Yes (Other)
  Sender: FDA-Public Use
  Company Number: US-MMM-JZNSE63O

PATIENT
  Age: 49 Year
  Sex: Female

DRUGS (1)
  1. BELANTAMAB MAFODOTIN [Suspect]
     Active Substance: BELANTAMAB MAFODOTIN
     Indication: Product used for unknown indication
     Dosage: UNK
     Dates: start: 20210423

REACTIONS (10)
  - Punctate keratitis [Unknown]
  - Corneal epithelium defect [Unknown]
  - Macular hole [Unknown]
  - Keratopathy [Unknown]
  - Visual acuity reduced [Unknown]
  - Vision blurred [Unknown]
  - Deposit eye [Unknown]
  - Refraction disorder [Unknown]
  - Eyelid ptosis [Unknown]
  - Conjunctival oedema [Unknown]

NARRATIVE: CASE EVENT DATE: 20210825
